FAERS Safety Report 10061429 (Version 4)
Quarter: 2014Q3

REPORT INFORMATION
  Report Type: Spontaneous
  Country: US (occurrence: US)
  Receive Date: 20140407
  Receipt Date: 20140714
  Transmission Date: 20150326
  Serious: Yes (Other)
  Sender: FDA-Public Use
  Company Number: US-AMGEN-USASP2014023581

PATIENT
  Age: 31 Year
  Sex: Female
  Weight: 61.22 kg

DRUGS (3)
  1. ENBREL [Suspect]
     Active Substance: ETANERCEPT
     Indication: RHEUMATOID ARTHRITIS
     Dosage: 50 MG, QWK
     Route: 065
     Dates: start: 201008
  2. PRENATAL WITH FOLIC ACID           /02284401/ [Concomitant]
     Dosage: UNK UNK, QD (ALL THE TIME)
     Route: 048
     Dates: start: 201205, end: 20131218
  3. PREDNISONE. [Concomitant]
     Active Substance: PREDNISONE
     Indication: RHEUMATOID ARTHRITIS
     Dosage: 5 MG, QD
     Route: 048
     Dates: start: 201205, end: 20131218

REACTIONS (3)
  - Abortion spontaneous [Unknown]
  - Haemorrhage in pregnancy [Unknown]
  - Progesterone decreased [Unknown]

NARRATIVE: CASE EVENT DATE: 20130220
